FAERS Safety Report 21994468 (Version 2)
Quarter: 2023Q2

REPORT INFORMATION
  Report Type: Spontaneous
  Country: US (occurrence: US)
  Receive Date: 20230215
  Receipt Date: 20230505
  Transmission Date: 20230722
  Serious: No
  Sender: FDA-Public Use
  Company Number: US-GLAUKOS-36500

PATIENT
  Age: 28 Year
  Sex: Male

DRUGS (9)
  1. PHOTREXA [Suspect]
     Active Substance: RIBOFLAVIN 5^-PHOSPHATE SODIUM
     Indication: Keratoconus
     Dosage: OS (LEFT EYE)
     Route: 047
  2. PHOTREXA [Suspect]
     Active Substance: RIBOFLAVIN 5^-PHOSPHATE SODIUM
     Dosage: OD (RIGHT EYE)
     Route: 047
  3. PHOTREXA VISCOUS [Suspect]
     Active Substance: RIBOFLAVIN 5^-PHOSPHATE SODIUM
     Indication: Keratoconus
     Dosage: OS (LEFT EYE)
     Route: 047
     Dates: start: 20220609, end: 20220609
  4. PHOTREXA VISCOUS [Suspect]
     Active Substance: RIBOFLAVIN 5^-PHOSPHATE SODIUM
     Dosage: OD (RIGHT EYE)
     Route: 047
     Dates: start: 20220819, end: 20220819
  5. DEVICE [Suspect]
     Active Substance: DEVICE
     Indication: Keratoconus
     Dosage: OS (LEFT EYE)
     Route: 047
     Dates: start: 20220609, end: 20220609
  6. DEVICE [Suspect]
     Active Substance: DEVICE
     Dosage: OD (RIGHT EYE)
     Route: 047
     Dates: start: 20220819, end: 20220819
  7. Omni(Compounded drop) Prednisolone-Moxi [Concomitant]
     Indication: Product used for unknown indication
     Dosage: OMNI(COMPOUNDED DROP) PREDNISOLONE1%-MOXI 0.5% TID OS (LEFT EYE)
  8. Omni(Compounded drop) Prednisolone-Moxi [Concomitant]
     Dosage: OMNI(COMPOUNDED DROP) PREDNISOLONE1%-MOXI 0.5% TID OS (LEFT EYE)
  9. PREDNISOLONE ACETATE [Concomitant]
     Active Substance: PREDNISOLONE ACETATE
     Indication: Product used for unknown indication

REACTIONS (3)
  - Disease progression [Not Recovered/Not Resolved]
  - Visual impairment [Not Recovered/Not Resolved]
  - Corneal scar [Not Recovered/Not Resolved]

NARRATIVE: CASE EVENT DATE: 20221007
